FAERS Safety Report 9851805 (Version 2)
Quarter: 2014Q1

REPORT INFORMATION
  Report Type: Spontaneous
  Country: PL (occurrence: PL)
  Receive Date: 20140129
  Receipt Date: 20140205
  Transmission Date: 20141002
  Serious: Yes (Death, Hospitalization, Other)
  Sender: FDA-Public Use
  Company Number: PL-009507513-1401POL011029

PATIENT
  Age: 55 Year
  Sex: Male
  Weight: 85 kg

DRUGS (3)
  1. VICTRELIS [Suspect]
     Indication: HEPATITIS C
     Dosage: 800 MG, TID
     Route: 048
     Dates: start: 20131025, end: 20140116
  2. PEGINTERFERON ALFA-2B [Suspect]
     Indication: HEPATITIS C
     Dosage: 180 MICROGRAM, QW
     Route: 030
     Dates: start: 20131025, end: 20140116
  3. COPEGUS [Suspect]
     Indication: HEPATITIS C
     Dosage: 600 MG, BID
     Route: 048
     Dates: start: 20131025, end: 20140116

REACTIONS (13)
  - Respiratory failure [Fatal]
  - Brain injury [Fatal]
  - Meningitis bacterial [Fatal]
  - Circulatory collapse [Fatal]
  - Confusional state [Unknown]
  - Agitation [Unknown]
  - Meningeal disorder [Unknown]
  - Epilepsy [Unknown]
  - Loss of consciousness [Unknown]
  - Malaise [Unknown]
  - Headache [Unknown]
  - Pyrexia [Unknown]
  - Asthenia [Unknown]
